FAERS Safety Report 6115823-0 (Version None)
Quarter: 2009Q1

REPORT INFORMATION
  Report Type: 
  Country: None (occurrence: None)
  Receive Date: 20090311
  Receipt Date: 20090224
  Transmission Date: 20090719
  Serious: Yes (Hospitalization)
  Sender: FDA-Public Use
  Company Number: AE2009-006

PATIENT
  Age: 33 Year
  Sex: Male

DRUGS (1)
  1. FAZACLO ODT [Suspect]
     Indication: SCHIZOPHRENIA, PARANOID TYPE
     Dosage: 325 MG QHS, PO
     Route: 048
     Dates: start: 20070110, end: 20081118

REACTIONS (10)
  - ACUTE RESPIRATORY FAILURE [None]
  - CONVULSION [None]
  - DIARRHOEA [None]
  - ENCEPHALOPATHY [None]
  - FUNGAEMIA [None]
  - GENERAL PHYSICAL HEALTH DETERIORATION [None]
  - MEGACOLON [None]
  - NEUROPATHY PERIPHERAL [None]
  - SEPSIS [None]
  - WEIGHT DECREASED [None]
